FAERS Safety Report 23370757 (Version 2)
Quarter: 2025Q3

REPORT INFORMATION
  Report Type: Spontaneous
  Country: US (occurrence: US)
  Receive Date: 20240105
  Receipt Date: 20250717
  Transmission Date: 20251021
  Serious: No
  Sender: SANOFI AVENTIS
  Company Number: US-SA-SAC20240102000136

PATIENT
  Age: 77 Year
  Sex: Female

DRUGS (1)
  1. DUPIXENT [Suspect]
     Active Substance: DUPILUMAB
     Indication: Asthma
     Dosage: 300 MG, QOW
     Route: 058

REACTIONS (7)
  - Nasal congestion [Recovered/Resolved]
  - Anosmia [Recovering/Resolving]
  - Cough [Unknown]
  - Orthostatic hypotension [Unknown]
  - Dizziness [Unknown]
  - Nasopharyngitis [Unknown]
  - Injection site pain [Unknown]
